FAERS Safety Report 4545469-7 (Version None)
Quarter: 2005Q1

REPORT INFORMATION
  Report Type: 
  Country: None (occurrence: None)
  Receive Date: 20050103
  Receipt Date: 20041209
  Transmission Date: 20050727
  Serious: Yes (Other)
  Sender: FDA-Public Use
  Company Number: USA041285726

PATIENT
  Age: 67 Year
  Sex: Female

DRUGS (1)
  1. EVISTA [Suspect]
     Indication: OSTEOPENIA
     Dates: start: 20020228

REACTIONS (1)
  - THYROID GLAND CANCER [None]
